FAERS Safety Report 5371874-5 (Version None)
Quarter: 2007Q2

REPORT INFORMATION
  Report Type: 
  Country: None (occurrence: None)
  Receive Date: 20070627
  Receipt Date: 20070618
  Transmission Date: 20071010
  Serious: Yes (Other)
  Sender: FDA-Public Use
  Company Number: US-JNJFOC-20070406469

PATIENT
  Age: 20 Year
  Sex: Female

DRUGS (2)
  1. ORTHO TRI-CYCLEN [Suspect]
     Indication: CONTRACEPTION
     Route: 048
  2. TRILEPTAL [Interacting]
     Indication: CONVULSION

REACTIONS (2)
  - CONVULSION [None]
  - DRUG INTERACTION [None]
